FAERS Safety Report 9570100 (Version 1)
Quarter: 2013Q3

REPORT INFORMATION
  Report Type: Spontaneous
  Country: US (occurrence: None)
  Receive Date: 20130926
  Receipt Date: 20130926
  Transmission Date: 20140515
  Serious: Yes (Other)
  Sender: FDA-Public Use
  Company Number: None

PATIENT
  Age: 49 Year
  Sex: Male
  Weight: 90.72 kg

DRUGS (1)
  1. CYMBALTA [Suspect]
     Indication: DEPRESSION
     Dosage: 1 PILL ONCE DAILY TAKEN BY MOUTH
     Route: 048
     Dates: start: 20120901, end: 20130925

REACTIONS (13)
  - Drug withdrawal syndrome [None]
  - Paraesthesia [None]
  - Feeling of body temperature change [None]
  - Pruritus [None]
  - Nausea [None]
  - Headache [None]
  - Tremor [None]
  - Lethargy [None]
  - Fatigue [None]
  - Insomnia [None]
  - Myalgia [None]
  - Arthralgia [None]
  - Mood swings [None]
